FAERS Safety Report 14670162 (Version 2)
Quarter: 2018Q2

REPORT INFORMATION
  Report Type: Spontaneous
  Country: IL (occurrence: IL)
  Receive Date: 20180322
  Receipt Date: 20180413
  Transmission Date: 20180711
  Serious: Yes (Hospitalization, Other)
  Sender: FDA-Public Use
  Company Number: IL-BRISTOL-MYERS SQUIBB COMPANY-BMS-2018-026155

PATIENT
  Sex: Male

DRUGS (1)
  1. ELIQUIS [Suspect]
     Active Substance: APIXABAN
     Indication: PRODUCT USED FOR UNKNOWN INDICATION
     Dosage: 2.5 MG, UNK
     Route: 065

REACTIONS (12)
  - Acute kidney injury [Unknown]
  - Diarrhoea [Unknown]
  - Tachycardia [Unknown]
  - Cardiac fibrillation [Unknown]
  - Anaemia [Unknown]
  - Chills [Unknown]
  - Head injury [Unknown]
  - Blood pressure decreased [Unknown]
  - Vomiting [Unknown]
  - Fall [Unknown]
  - Dizziness [Unknown]
  - General physical health deterioration [Unknown]
